FAERS Safety Report 10977281 (Version 2)
Quarter: 2015Q2

REPORT INFORMATION
  Report Type: Report from Study
  Country: US (occurrence: None)
  Receive Date: 20150331
  Receipt Date: 20150527
  Transmission Date: 20150821
  Serious: Yes (Hospitalization)
  Sender: FDA-Public Use
  Company Number: 2015AP007614

PATIENT
  Age: 74 Year
  Sex: Male
  Weight: 85.7 kg

DRUGS (12)
  1. ACYCLOVIR /00587301/ (ACICLOVIR) [Concomitant]
     Active Substance: ACYCLOVIR
  2. VITAMIN B12 [Concomitant]
     Active Substance: CYANOCOBALAMIN
  3. FERRIPROX [Suspect]
     Active Substance: DEFERIPRONE
     Indication: HAEMOCHROMATOSIS
     Route: 048
     Dates: start: 20140106, end: 20150307
  4. ZOLPIDEM [Concomitant]
     Active Substance: ZOLPIDEM\ZOLPIDEM TARTRATE
  5. ARMOUR THYROID (THYROID) [Concomitant]
  6. MAG OXIDE (MAGNESIUM OXIDE) [Concomitant]
  7. FERRIPROX [Suspect]
     Active Substance: DEFERIPRONE
     Indication: IRON METABOLISM DISORDER
     Route: 048
     Dates: start: 20140106, end: 20150307
  8. ROPINIROLE. [Concomitant]
     Active Substance: ROPINIROLE
  9. LORAZEPAM. [Concomitant]
     Active Substance: LORAZEPAM
  10. HYDROCODONE/APP (HYDROCODONE BITARTRATE, PARACETAMOL) [Concomitant]
  11. FLUCONAZOLE. [Concomitant]
     Active Substance: FLUCONAZOLE
  12. STOOL SOFTENER (DOCUSATE SODIUM) [Concomitant]
     Active Substance: DOCUSATE SODIUM

REACTIONS (2)
  - Urinary tract infection [None]
  - White blood cell count decreased [None]

NARRATIVE: CASE EVENT DATE: 20150307
